FAERS Safety Report 21238024 (Version 1)
Quarter: 2022Q3

REPORT INFORMATION
  Report Type: Spontaneous
  Country: US (occurrence: None)
  Receive Date: 20220822
  Receipt Date: 20220822
  Transmission Date: 20221026
  Serious: No
  Sender: FDA-Public Use
  Company Number: 2022A249241

PATIENT
  Age: 41 Year
  Sex: Male

DRUGS (1)
  1. BYDUREON BCISE [Suspect]
     Active Substance: EXENATIDE
     Indication: Type 2 diabetes mellitus
     Route: 058
     Dates: start: 2021

REACTIONS (7)
  - Mass [Unknown]
  - Scar [Unknown]
  - Incorrect dose administered by product [Unknown]
  - Product dose omission issue [Unknown]
  - Device use issue [Unknown]
  - Device malfunction [Unknown]
  - Device leakage [Unknown]

NARRATIVE: CASE EVENT DATE: 20220101
